FAERS Safety Report 8081883-3 (Version None)
Quarter: 2012Q1

REPORT INFORMATION
  Report Type: 
  Country: None (occurrence: None)
  Receive Date: 20120130
  Receipt Date: 20120126
  Transmission Date: 20120608
  Serious: No
  Sender: FDA-Public Use
  Company Number: US-BAYER-2012-009241

PATIENT
  Age: 82 Year
  Sex: Female
  Weight: 73 kg

DRUGS (1)
  1. NAPROXEN (ALEVE) [Suspect]
     Indication: HEADACHE
     Dosage: 2 TAB
     Route: 048
     Dates: start: 20120126

REACTIONS (2)
  - EYE PAIN [None]
  - HEADACHE [None]
